FAERS Safety Report 4865035-3 (Version None)
Quarter: 2005Q4

REPORT INFORMATION
  Report Type: 
  Country: None (occurrence: None)
  Receive Date: 20051219
  Receipt Date: 20051208
  Transmission Date: 20060501
  Serious: No
  Sender: FDA-Public Use
  Company Number: 2005JP000955

PATIENT
  Age: 75 Year
  Sex: Male
  Weight: 58.6 kg

DRUGS (4)
  1. FUNGUARD(MICAFUNGIN) INJECTION [Suspect]
     Dosage: 50 MG, UID/QD, IV DRIP
     Route: 041
     Dates: start: 20050425, end: 20050426
  2. FAMOTIDINE [Concomitant]
  3. CARBENIN (BETAMIPRON, PANIPENEM) [Concomitant]
  4. CLINDAMYCIN HCL [Concomitant]

REACTIONS (6)
  - DELIRIUM [None]
  - DISORIENTATION [None]
  - EXCITABILITY [None]
  - MENINGITIS FUNGAL [None]
  - PYREXIA [None]
  - RESTLESSNESS [None]
